FAERS Safety Report 5620130-6 (Version None)
Quarter: 2008Q1

REPORT INFORMATION
  Report Type: 
  Country: None (occurrence: None)
  Receive Date: 20080208
  Receipt Date: 20080128
  Transmission Date: 20080703
  Serious: Yes (Death, Hospitalization, Other)
  Sender: FDA-Public Use
  Company Number: FR-ROCHE-543847

PATIENT
  Age: 87 Year
  Sex: Male

DRUGS (6)
  1. ROCEPHIN [Suspect]
     Indication: SEPTIC SHOCK
     Dosage: FORMULATION: INJECTABLE SOLUTION, DOSAGE REGIMEN: 1 INTAKE, STRENGTH: 2 G/ 40 ML
     Route: 042
     Dates: start: 20070927, end: 20070927
  2. ACTRAPID [Concomitant]
     Dosage: DOSAGE REGIMEN: 1 INTAKE (AT 12 AM)
     Route: 058
     Dates: start: 20070927, end: 20070927
  3. VOLUVEN [Concomitant]
     Dosage: FROM 12:30 PM TO 6:30 PM
     Route: 042
     Dates: start: 20070927, end: 20070927
  4. ATROVENT [Concomitant]
     Indication: BRONCHOSPASM
     Dosage: FROM 11 AM TO 11:15 AM
     Route: 055
     Dates: start: 20070927, end: 20070927
  5. BRICANYL [Concomitant]
     Indication: BRONCHOSPASM
     Dosage: FROM 11 AM TO 11:15 AM
     Route: 055
     Dates: start: 20070927, end: 20070927
  6. PERFALGAN [Concomitant]
     Indication: FRACTURE
     Dosage: FROM 11:40 AM TO 12:10 PM
     Route: 042
     Dates: start: 20070927, end: 20070927

REACTIONS (5)
  - AGITATION [None]
  - ANAPHYLACTIC SHOCK [None]
  - HYPOTENSION [None]
  - HYPOXIA [None]
  - URTICARIA [None]
